FAERS Safety Report 6305214 (Version 7)
Quarter: 2013Q2

REPORT INFORMATION
  Report Type: Spontaneous
  Country: FR (occurrence: FR)
  Receive Date: 20070504
  Receipt Date: 20130409
  Transmission Date: 20140414
  Serious: Yes (Hospitalization, Other)
  Sender: FDA-Public Use
  Company Number: FR-PFIZER INC-2007032975

PATIENT
  Age: 45 Year
  Sex: Male
  Weight: 63 kg

DRUGS (13)
  1. VFEND [Suspect]
     Indication: OROPHARYNGEAL CANDIDIASIS
     Dosage: 200 MG, 2X/DAY
     Route: 048
     Dates: start: 20031017, end: 20040625
  2. VFEND [Suspect]
     Dosage: 200 MG, 2X/DAY
     Route: 048
     Dates: start: 20041209, end: 200508
  3. VFEND [Suspect]
     Dosage: 200 MG, 2X/DAY
     Route: 048
     Dates: start: 200509, end: 20061109
  4. BACTRIM FORTE [Concomitant]
     Route: 048
  5. VALGANCICLOVIR HYDROCHLORIDE [Concomitant]
     Route: 048
  6. AZADOSE [Concomitant]
     Dosage: 3 EVERY 1 WEEKS
     Route: 048
  7. CAELYX [Concomitant]
     Indication: KAPOSI^S SARCOMA
     Route: 042
     Dates: start: 20030207
  8. FUZEON [Concomitant]
     Route: 058
     Dates: start: 20030704
  9. VIREAD [Concomitant]
     Indication: HIV INFECTION
     Route: 048
  10. EPIVIR [Concomitant]
  11. KALETRA [Concomitant]
     Indication: HIV INFECTION
     Route: 048
  12. INVIRASE [Concomitant]
     Indication: HIV INFECTION
     Route: 048
  13. FLUCONAZOLE [Concomitant]
     Dosage: UNK
     Route: 048
     Dates: start: 2003

REACTIONS (4)
  - Photosensitivity reaction [Recovered/Resolved]
  - Photosensitivity reaction [Recovered/Resolved]
  - Photosensitivity reaction [Recovered/Resolved with Sequelae]
  - Squamous cell carcinoma of skin [Unknown]
